FAERS Safety Report 6861620-8 (Version None)
Quarter: 2010Q3

REPORT INFORMATION
  Report Type: 
  Country: None (occurrence: None)
  Receive Date: 20100721
  Receipt Date: 20100713
  Transmission Date: 20110219
  Serious: Yes (Hospitalization)
  Sender: FDA-Public Use
  Company Number: US-BIOGENIDEC-2010BI023929

PATIENT
  Age: 48 Year
  Sex: Female

DRUGS (2)
  1. AVONEX [Suspect]
     Indication: MULTIPLE SCLEROSIS
     Route: 030
     Dates: start: 19990101, end: 20060801
  2. AVONEX [Suspect]
     Route: 030
     Dates: start: 20070228

REACTIONS (4)
  - AMNESIA [None]
  - COMA [None]
  - DECUBITUS ULCER [None]
  - STAPHYLOCOCCAL INFECTION [None]
